FAERS Safety Report 20591607 (Version 4)
Quarter: 2023Q1

REPORT INFORMATION
  Report Type: Other
  Country: CL (occurrence: None)
  Receive Date: 20220314
  Receipt Date: 20230223
  Transmission Date: 20230417
  Serious: Yes (Hospitalization, Other)
  Sender: FDA-Public Use
  Company Number: CL-ROCHE-2874647

PATIENT
  Age: 57 Year
  Sex: Male

DRUGS (7)
  1. ATEZOLIZUMAB [Suspect]
     Active Substance: ATEZOLIZUMAB
     Indication: Hepatocellular carcinoma
     Dosage: FREQUENCY WAS NOT REPORTED
     Route: 041
  2. ATEZOLIZUMAB [Suspect]
     Active Substance: ATEZOLIZUMAB
     Indication: Hepatocellular carcinoma
  3. BEVACIZUMAB [Suspect]
     Active Substance: BEVACIZUMAB
     Indication: Hepatocellular carcinoma
     Dosage: FREQUENCY WAS NOT REPORTED
     Route: 042
  4. BEVACIZUMAB [Suspect]
     Active Substance: BEVACIZUMAB
     Indication: Hepatocellular carcinoma
  5. PROPRANOLOL [Concomitant]
     Active Substance: PROPRANOLOL HYDROCHLORIDE
  6. SPIRONOLACTONE [Concomitant]
     Active Substance: SPIRONOLACTONE
  7. FUROSEMIDE [Concomitant]
     Active Substance: FUROSEMIDE

REACTIONS (13)
  - Bleeding varicose vein [Recovered/Resolved]
  - Venous ligation [Unknown]
  - Upper gastrointestinal haemorrhage [Unknown]
  - Therapy partial responder [Unknown]
  - Varices oesophageal [Recovered/Resolved]
  - Vomiting [Unknown]
  - Chalazion [Unknown]
  - Leukopenia [Unknown]
  - Varices oesophageal [Unknown]
  - Pleural effusion [Unknown]
  - Jaundice [Unknown]
  - Ascites [Unknown]
  - Hepatic cirrhosis [Not Recovered/Not Resolved]

NARRATIVE: CASE EVENT DATE: 20210901
